FAERS Safety Report 6702856-6 (Version None)
Quarter: 2010Q2

REPORT INFORMATION
  Report Type: 
  Country: None (occurrence: None)
  Receive Date: 20100429
  Receipt Date: 20100429
  Transmission Date: 20101027
  Serious: Yes (Hospitalization)
  Sender: FDA-Public Use
  Company Number: None

PATIENT
  Age: 61 Year
  Sex: Male
  Weight: 110 kg

DRUGS (1)
  1. CLINDAMYCIN [Suspect]
     Indication: TOOTH ABSCESS
     Dosage: 300 MG QID PO
     Route: 048
     Dates: start: 20091105, end: 20091109

REACTIONS (6)
  - ASCITES [None]
  - CHRONIC HEPATIC FAILURE [None]
  - CONDITION AGGRAVATED [None]
  - DIARRHOEA [None]
  - RENAL FAILURE ACUTE [None]
  - URTICARIA [None]
